FAERS Safety Report 9522106 (Version 2)
Quarter: 2013Q3

REPORT INFORMATION
  Report Type: Spontaneous
  Country: US (occurrence: None)
  Receive Date: 20130911
  Receipt Date: 20130912
  Transmission Date: 20140515
  Serious: Yes (Death, Other)
  Sender: FDA-Public Use
  Company Number: CPI-4903

PATIENT
  Age: 35 Year
  Sex: Female

DRUGS (2)
  1. N-ACETYLCYSTEINE [Suspect]
     Indication: ACUTE HEPATIC FAILURE
  2. N-ACETYLCYSTEINE [Suspect]
     Indication: TOXICITY TO VARIOUS AGENTS

REACTIONS (6)
  - Haemodialysis [None]
  - General physical health deterioration [None]
  - Convulsion [None]
  - Multi-organ failure [None]
  - Hepatic necrosis [None]
  - Hepatic steatosis [None]
